FAERS Safety Report 6185507-1 (Version None)
Quarter: 2009Q2

REPORT INFORMATION
  Report Type: 
  Country: None (occurrence: None)
  Receive Date: 20090507
  Receipt Date: 20090422
  Transmission Date: 20091009
  Serious: Yes (Hospitalization, Other)
  Sender: FDA-Public Use
  Company Number: A-CH2009-24971

PATIENT
  Age: 52 Year
  Sex: Male
  Weight: 76 kg

DRUGS (3)
  1. TRACLEER [Suspect]
     Indication: SKIN ULCER
     Dosage: 62.5 MG, BID, ORAL
     Route: 048
     Dates: start: 20090316
  2. PYOSTACINE(PRISTINAMYCIN) [Suspect]
     Dates: start: 20090401
  3. TORENTAL (PENTOXIFYLLINE) [Concomitant]

REACTIONS (6)
  - CONDITION AGGRAVATED [None]
  - CUTANEOUS LUPUS ERYTHEMATOSUS [None]
  - ERYSIPELAS [None]
  - HAEMATOLOGY TEST ABNORMAL [None]
  - LEUKOCYTOCLASTIC VASCULITIS [None]
  - THROMBOTIC MICROANGIOPATHY [None]
